FAERS Safety Report 21695539 (Version 1)
Quarter: 2022Q4

REPORT INFORMATION
  Report Type: Spontaneous
  Country: US (occurrence: None)
  Receive Date: 20221207
  Receipt Date: 20221207
  Transmission Date: 20230112
  Serious: Yes (Other)
  Sender: FDA-Public Use
  Company Number: None

PATIENT
  Age: 39 Year
  Sex: Female
  Weight: 65.5 kg

DRUGS (2)
  1. GILENYA [Suspect]
     Active Substance: FINGOLIMOD HYDROCHLORIDE
     Indication: Multiple sclerosis
     Dosage: OTHER FREQUENCY : EVERY 3 DAYS;?
     Route: 048
     Dates: start: 20190101, end: 20221101
  2. GILENYA [Concomitant]
     Active Substance: FINGOLIMOD HYDROCHLORIDE
     Dates: start: 20190101, end: 20221101

REACTIONS (2)
  - Gastrointestinal stromal tumour [None]
  - Gastrointestinal neoplasm [None]

NARRATIVE: CASE EVENT DATE: 20221201
